FAERS Safety Report 24655387 (Version 1)
Quarter: 2024Q4

REPORT INFORMATION
  Report Type: Spontaneous
  Country: US (occurrence: US)
  Receive Date: 20241123
  Receipt Date: 20241123
  Transmission Date: 20250114
  Serious: Yes (Other)
  Sender: AIMMUNE
  Company Number: US-AIMMUNE THERAPEUTICS, INC.-2024AIMT01563

PATIENT

DRUGS (2)
  1. VOWST [Suspect]
     Active Substance: DONOR HUMAN STOOL SPORES (ETHANOL TREATED)
     Indication: Clostridium difficile colitis
     Dosage: 4 CAPSULES, 1X/DAY
     Route: 048
     Dates: start: 20241110
  2. VOWST [Suspect]
     Active Substance: DONOR HUMAN STOOL SPORES (ETHANOL TREATED)
     Dosage: 4 CAPSULES, ONCE
     Route: 048
     Dates: start: 20241110, end: 20241110

REACTIONS (3)
  - Feeling hot [Unknown]
  - Vomiting [Unknown]
  - Chills [Unknown]

NARRATIVE: CASE EVENT DATE: 20241110
